FAERS Safety Report 4879521-3 (Version None)
Quarter: 2006Q1

REPORT INFORMATION
  Report Type: 
  Country: None (occurrence: None)
  Receive Date: 20060111
  Receipt Date: 20051228
  Transmission Date: 20060701
  Serious: Yes (Life-Threatening)
  Sender: FDA-Public Use
  Company Number: US016585

PATIENT
  Age: 24 Year
  Sex: Male

DRUGS (7)
  1. ARSENIC TRIOXIDE [Suspect]
     Indication: ACUTE PROMYELOCYTIC LEUKAEMIA
     Dosage: 9.3 MG QD INTRAVENOUS DRIP
     Route: 041
     Dates: start: 20050418, end: 20050505
  2. ARSENIC TRIOXIDE [Suspect]
     Indication: ACUTE PROMYELOCYTIC LEUKAEMIA
     Dosage: 9.3 MG QD INTRAVENOUS DRIP
     Route: 041
     Dates: start: 20050510, end: 20050522
  3. TRETINOIN [Concomitant]
  4. FLUCONAZOLE [Concomitant]
  5. SULFAMETHOXAZOLE + TRIMETHOPRIM [Concomitant]
  6. FUROSEMIDE [Concomitant]
  7. DRUGS FOR ELECTROLYTE REPLACMENT [Concomitant]

REACTIONS (8)
  - BUNDLE BRANCH BLOCK RIGHT [None]
  - CONVULSION [None]
  - ELECTROCARDIOGRAM QT CORRECTED INTERVAL PROLONGED [None]
  - ELECTROCARDIOGRAM QT PROLONGED [None]
  - EXTRASYSTOLES [None]
  - PALPITATIONS [None]
  - VENTRICULAR TACHYCARDIA [None]
  - VISUAL DISTURBANCE [None]
